FAERS Safety Report 6600600-4 (Version None)
Quarter: 2010Q1

REPORT INFORMATION
  Report Type: 
  Country: None (occurrence: None)
  Receive Date: 20100223
  Receipt Date: 20100223
  Transmission Date: 20100710
  Serious: Yes (Other)
  Sender: FDA-Public Use
  Company Number: None

PATIENT
  Age: 28 Year
  Sex: Female
  Weight: 55 kg

DRUGS (1)
  1. COPAXONE [Suspect]
     Indication: RELAPSING-REMITTING MULTIPLE SCLEROSIS
     Dosage: 20MG/1ML DAILY SUBCUTANEOUSLY
     Route: 058
     Dates: start: 20091123, end: 20100221

REACTIONS (10)
  - ASPHYXIA [None]
  - DYSPNOEA [None]
  - FLUSHING [None]
  - HYPERSENSITIVITY [None]
  - HYPOAESTHESIA [None]
  - HYPOAESTHESIA ORAL [None]
  - INJECTION SITE REACTION [None]
  - LIP SWELLING [None]
  - NASAL OEDEMA [None]
  - THROAT TIGHTNESS [None]
